FAERS Safety Report 13264674 (Version 3)
Quarter: 2017Q1

REPORT INFORMATION
  Report Type: Spontaneous
  Country: JP (occurrence: JP)
  Receive Date: 20170223
  Receipt Date: 20170317
  Transmission Date: 20170428
  Serious: Yes (Hospitalization, Other)
  Sender: FDA-Public Use
  Company Number: JP-PFIZER INC-2017079872

PATIENT
  Age: 25 Year
  Sex: Male

DRUGS (4)
  1. CELECOX [Suspect]
     Active Substance: CELECOXIB
     Indication: PALINDROMIC RHEUMATISM
     Dosage: AS NEEDED
     Route: 048
     Dates: start: 20161005
  2. CELECOX [Suspect]
     Active Substance: CELECOXIB
     Dosage: 400 MG, 1X/DAY
     Route: 048
  3. DICLOFENAC NA [Suspect]
     Active Substance: DICLOFENAC SODIUM
     Dosage: 30 MG, 1X/DAY
     Route: 061
  4. DICLOFENAC NA [Suspect]
     Active Substance: DICLOFENAC SODIUM
     Dosage: 50 MG, 1X/DAY
     Route: 054

REACTIONS (2)
  - Aortic dissection [Unknown]
  - Off label use [Unknown]

NARRATIVE: CASE EVENT DATE: 20161005
